FAERS Safety Report 8548868-1 (Version None)
Quarter: 2012Q3

REPORT INFORMATION
  Report Type: 
  Country: None (occurrence: None)
  Receive Date: 20120730
  Receipt Date: 20120725
  Transmission Date: 20120928
  Serious: Yes (Other)
  Sender: FDA-Public Use
  Company Number: PHFR2012GB004170

PATIENT
  Sex: Male

DRUGS (3)
  1. CLOZARIL [Suspect]
     Indication: SCHIZOPHRENIA
     Route: 048
     Dates: start: 20010701
  2. CLOZARIL [Suspect]
     Dosage: 850 MG, QD
     Route: 048
     Dates: start: 20120601
  3. CLOZARIL [Suspect]
     Dosage: 800 MG, UNK
     Route: 048

REACTIONS (4)
  - PETIT MAL EPILEPSY [None]
  - FRACTURE [None]
  - PNEUMONIA [None]
  - HEART RATE INCREASED [None]
